FAERS Safety Report 14577828 (Version 1)
Quarter: 2018Q1

REPORT INFORMATION
  Report Type: Spontaneous
  Country: CA (occurrence: CA)
  Receive Date: 20180226
  Receipt Date: 20180226
  Transmission Date: 20180509
  Serious: Yes (Hospitalization)
  Sender: FDA-Public Use
  Company Number: None

PATIENT
  Age: 68 Year
  Sex: Female
  Weight: 54 kg

DRUGS (4)
  1. ULTRAVATE [Suspect]
     Active Substance: HALOBETASOL PROPIONATE
     Indication: ECZEMA
     Dosage: ?          QUANTITY:2 TUBE;?
     Route: 061
  2. EFTA THYROID MEDICATION [Concomitant]
  3. PROBIOTICS [Suspect]
     Active Substance: PROBIOTICS NOS
  4. CLOBETASOL [Suspect]
     Active Substance: CLOBETASOL
     Indication: ECZEMA
     Dosage: ?          QUANTITY:1 TUB;?
     Route: 061

REACTIONS (3)
  - Eczema [None]
  - Rash [None]
  - Drug effect incomplete [None]

NARRATIVE: CASE EVENT DATE: 20150524
